FAERS Safety Report 12991496 (Version 2)
Quarter: 2017Q1

REPORT INFORMATION
  Report Type: Spontaneous
  Country: US (occurrence: US)
  Receive Date: 20161201
  Receipt Date: 20170118
  Transmission Date: 20170428
  Serious: Yes (Hospitalization, Other)
  Sender: FDA-Public Use
  Company Number: US-ALKERMES INC.-ALK-2016-003577

PATIENT
  Age: 26 Year
  Sex: Male
  Weight: 69.39 kg

DRUGS (6)
  1. VIVITROL [Suspect]
     Active Substance: NALTREXONE
     Indication: DRUG DEPENDENCE
     Dosage: 380 MG, QMO
     Route: 030
     Dates: start: 20150123
  2. XANAX [Concomitant]
     Active Substance: ALPRAZOLAM
     Indication: PRODUCT USED FOR UNKNOWN INDICATION
     Dosage: 0.5 MG, UNK
     Route: 048
     Dates: start: 20150116
  3. ZANTAC [Concomitant]
     Active Substance: RANITIDINE HYDROCHLORIDE
     Indication: PRODUCT USED FOR UNKNOWN INDICATION
     Dosage: 150 MG, QHS
     Route: 048
     Dates: start: 20150116
  4. KLONOPIN [Concomitant]
     Active Substance: CLONAZEPAM
     Indication: PRODUCT USED FOR UNKNOWN INDICATION
     Dosage: 0.5 MG, PRN
     Route: 048
     Dates: start: 20150418
  5. REVIA [Concomitant]
     Active Substance: NALTREXONE HYDROCHLORIDE
     Indication: PRODUCT USED FOR UNKNOWN INDICATION
     Dosage: 50 MG, ONE TIME DOSE
     Route: 048
     Dates: start: 20150123
  6. CELEXA [Concomitant]
     Active Substance: CITALOPRAM HYDROBROMIDE
     Indication: PRODUCT USED FOR UNKNOWN INDICATION
     Dosage: 40 MG, QD
     Route: 048
     Dates: start: 20150116

REACTIONS (44)
  - Dehydration [Recovered/Resolved]
  - Renal failure [Recovered/Resolved]
  - Hypokalaemia [Unknown]
  - Insomnia [Unknown]
  - Cardiac murmur [Unknown]
  - Cellulitis [Unknown]
  - Hypocalcaemia [Unknown]
  - Mood altered [Unknown]
  - Thrombocytopenia [Recovered/Resolved]
  - Irritability [Unknown]
  - Gastroenteritis [Unknown]
  - Syncope [Recovered/Resolved]
  - Urinary tract infection [Unknown]
  - Blood glucose increased [Unknown]
  - Osteomyelitis [Unknown]
  - Blood osmolarity decreased [Unknown]
  - Hyponatraemia [Recovered/Resolved]
  - Coma [Recovered/Resolved]
  - Concussion [Unknown]
  - Incision site pain [Unknown]
  - Hot flush [Recovered/Resolved]
  - Vomiting [Recovered/Resolved]
  - Nausea [Unknown]
  - Pain in extremity [Unknown]
  - Anger [Unknown]
  - Tachycardia [Unknown]
  - Abdominal pain [Unknown]
  - Paraesthesia [Unknown]
  - Femur fracture [Recovered/Resolved with Sequelae]
  - Hip fracture [Recovered/Resolved with Sequelae]
  - Anaemia [Unknown]
  - Chills [Recovered/Resolved]
  - Haematemesis [Recovered/Resolved]
  - Iron deficiency anaemia [Unknown]
  - Laceration [Unknown]
  - Oropharyngeal pain [Unknown]
  - Acute kidney injury [Recovered/Resolved]
  - Road traffic accident [Recovered/Resolved]
  - Leukocytosis [Unknown]
  - Pain [Unknown]
  - Skin abrasion [Unknown]
  - Fatigue [Unknown]
  - Pyrexia [Recovered/Resolved]
  - Toothache [Unknown]

NARRATIVE: CASE EVENT DATE: 20150303
